FAERS Safety Report 4867082-4 (Version None)
Quarter: 2005Q4

REPORT INFORMATION
  Report Type: 
  Country: None (occurrence: None)
  Receive Date: 20051222
  Receipt Date: 20051212
  Transmission Date: 20060501
  Serious: Yes (Hospitalization)
  Sender: FDA-Public Use
  Company Number: DSA_27540_2005

PATIENT
  Age: 70 Year
  Sex: Male

DRUGS (2)
  1. LORAZEPAM [Suspect]
     Dosage: 10 MG ONCE PO
     Route: 048
     Dates: start: 20051210, end: 20051210
  2. MARCUMAR [Suspect]
     Dosage: DF Q DAY PO
     Route: 048

REACTIONS (3)
  - ABDOMINAL PAIN [None]
  - ACCIDENTAL OVERDOSE [None]
  - FATIGUE [None]
